FAERS Safety Report 6534164-0 (Version None)
Quarter: 2010Q1

REPORT INFORMATION
  Report Type: 
  Country: None (occurrence: None)
  Receive Date: 20100112
  Receipt Date: 20100106
  Transmission Date: 20100710
  Serious: Yes (Other)
  Sender: FDA-Public Use
  Company Number: AU-SANOFI-AVENTIS-200920214GDDC

PATIENT
  Age: 43 Year
  Sex: Female

DRUGS (8)
  1. LEFLUNOMIDE [Suspect]
     Indication: RHEUMATOID ARTHRITIS
     Route: 048
     Dates: start: 20090525, end: 20090804
  2. METHOTREXATE [Concomitant]
     Dosage: DOSE AS USED: UNK
     Dates: start: 20081210
  3. SULFASALAZINE [Concomitant]
     Dosage: DOSE AS USED: UNK
     Dates: start: 20081210, end: 20090331
  4. PREDNISONE [Concomitant]
     Dosage: DOSE AS USED: UNK
  5. FOLIC ACID [Concomitant]
     Dosage: DOSE AS USED: UNK
  6. LOSEC /SWE/ [Concomitant]
     Dosage: DOSE AS USED: UNK
  7. FISH OIL [Concomitant]
     Dosage: DOSE AS USED: UNK
  8. CALTRATE [Concomitant]
     Dosage: DOSE AS USED: UNK

REACTIONS (6)
  - ADENOCARCINOMA [None]
  - CARDIOMEGALY [None]
  - COUGH [None]
  - LEFT ATRIAL DILATATION [None]
  - LUNG NEOPLASM [None]
  - PERICARDIAL EFFUSION [None]
